FAERS Safety Report 6125297-1 (Version None)
Quarter: 2009Q1

REPORT INFORMATION
  Report Type: 
  Country: None (occurrence: None)
  Receive Date: 20090317
  Receipt Date: 20090312
  Transmission Date: 20090719
  Serious: Yes (Hospitalization)
  Sender: FDA-Public Use
  Company Number: GXKR2009DE03106

PATIENT
  Age: 69 Year
  Sex: Female

DRUGS (5)
  1. DOXAZOSIN MESYLATE [Suspect]
     Indication: HYPERTENSION
     Dosage: 2 MG, QD, ORAL
     Route: 048
  2. RAMIPRIL [Suspect]
     Indication: HYPERTENSION
     Dosage: 5 MG, 2 IN DAY, ORAL
     Route: 048
  3. AMLODIPINE W/VALSARTAN (AMLODIPINE, VALSARTAN) 10/160MG [Suspect]
     Indication: HYPERTENSION
     Dosage: 1 DF, QD, ORAL
     Route: 048
  4. METOPROLOL SUCCINATE [Suspect]
     Indication: HYPERTENSION
     Dosage: 95-0-47.5MG, ORAL
     Route: 048
     Dates: end: 20090101
  5. ACETYLSALICYLIC ACID SRT [Concomitant]

REACTIONS (3)
  - DRUG INTERACTION [None]
  - SINUS BRADYCARDIA [None]
  - SYNCOPE [None]
